FAERS Safety Report 8516128-0 (Version None)
Quarter: 2012Q3

REPORT INFORMATION
  Report Type: 
  Country: None (occurrence: None)
  Receive Date: 20120717
  Receipt Date: 20120620
  Transmission Date: 20120928
  Serious: No
  Sender: FDA-Public Use
  Company Number: US-NOVEN-12US004822

PATIENT
  Sex: Male

DRUGS (2)
  1. VICODIN [Concomitant]
     Indication: PAIN
     Route: 048
  2. FENTANYL [Suspect]
     Indication: ARTHRITIS
     Dosage: 25 UG/HR, EVERY 3 DAYS
     Route: 062
     Dates: start: 20120616

REACTIONS (2)
  - INADEQUATE ANALGESIA [None]
  - PRODUCT QUALITY ISSUE [None]
